FAERS Safety Report 10227559 (Version 7)
Quarter: 2015Q2

REPORT INFORMATION
  Report Type: Report from Study
  Country: CA (occurrence: CA)
  Receive Date: 20140610
  Receipt Date: 20150519
  Transmission Date: 20150821
  Serious: Yes (Death, Other)
  Sender: FDA-Public Use
  Company Number: PHHY2014CA033454

PATIENT
  Age: 67 Year
  Sex: Male

DRUGS (2)
  1. SANDOSTATIN LAR DEPOT [Suspect]
     Active Substance: OCTREOTIDE ACETATE
     Indication: NEUROENDOCRINE TUMOUR
     Dosage: 30 MG, EVERY 4 WEEKS
     Route: 030
     Dates: start: 20140117, end: 20150413
  2. CARBOPLATIN. [Concomitant]
     Active Substance: CARBOPLATIN
     Indication: PRODUCT USED FOR UNKNOWN INDICATION
     Route: 065

REACTIONS (11)
  - Rash [Recovering/Resolving]
  - Fatigue [Unknown]
  - Drug hypersensitivity [Unknown]
  - Death [Fatal]
  - Thrombosis [Unknown]
  - Malignant neoplasm progression [Unknown]
  - Body temperature decreased [Unknown]
  - Blood pressure increased [Unknown]
  - Metastases to liver [Unknown]
  - Anxiety [Unknown]
  - Back pain [Unknown]

NARRATIVE: CASE EVENT DATE: 20140313
